FAERS Safety Report 19093988 (Version 5)
Quarter: 2021Q2

REPORT INFORMATION
  Report Type: Report from Study
  Country: US (occurrence: US)
  Receive Date: 20210405
  Receipt Date: 20210526
  Transmission Date: 20210717
  Serious: Yes (Other)
  Sender: FDA-Public Use
  Company Number: NVSC2021US071765

PATIENT
  Sex: Female
  Weight: 61.68 kg

DRUGS (6)
  1. TREPROSTINIL. [Suspect]
     Active Substance: TREPROSTINIL
     Indication: PULMONARY ARTERIAL HYPERTENSION
     Dosage: 11 NG/KG/MIN, CONTINUOUS
     Route: 042
     Dates: start: 20140107
  2. LETAIRIS [Concomitant]
     Active Substance: AMBRISENTAN
     Indication: PRODUCT USED FOR UNKNOWN INDICATION
     Dosage: UNK
     Route: 065
  3. TREPROSTINIL. [Suspect]
     Active Substance: TREPROSTINIL
     Dosage: 18 NG/KG/MIN, CONTINUOUS
     Route: 042
     Dates: start: 20140107
  4. ADEMPAS [Concomitant]
     Active Substance: RIOCIGUAT
     Indication: PRODUCT USED FOR UNKNOWN INDICATION
     Dosage: 2.5 MG, TID
     Route: 065
  5. ADEMPAS [Concomitant]
     Active Substance: RIOCIGUAT
     Dosage: 2 MG, TID
     Route: 065
  6. ADEMPAS [Concomitant]
     Active Substance: RIOCIGUAT
     Dosage: 1 MG
     Route: 065

REACTIONS (4)
  - Hypotension [Unknown]
  - Loss of consciousness [Unknown]
  - Rash pruritic [Unknown]
  - Syncope [Unknown]
